FAERS Safety Report 19153597 (Version 2)
Quarter: 2021Q2

REPORT INFORMATION
  Report Type: Spontaneous
  Country: CN (occurrence: CN)
  Receive Date: 20210419
  Receipt Date: 20210513
  Transmission Date: 20210717
  Serious: Yes (Other)
  Sender: FDA-Public Use
  Company Number: CN-SUN PHARMACEUTICAL INDUSTRIES LTD-2021R1-292191

PATIENT
  Age: 3 Month
  Sex: Male
  Weight: 2.7 kg

DRUGS (2)
  1. DIGOXIN. [Suspect]
     Active Substance: DIGOXIN
     Dosage: 3 MILLILITER, BID (7 TIMES)
     Route: 048
  2. DIGOXIN. [Suspect]
     Active Substance: DIGOXIN
     Indication: HEART DISEASE CONGENITAL
     Dosage: 0.3 MILLILITER, BID
     Route: 048

REACTIONS (1)
  - Toxicity to various agents [Unknown]
